FAERS Safety Report 17289495 (Version 2)
Quarter: 2020Q2

REPORT INFORMATION
  Report Type: Report from Study
  Country: DE (occurrence: DE)
  Receive Date: 20200120
  Receipt Date: 20200616
  Transmission Date: 20200713
  Serious: Yes (Hospitalization)
  Sender: FDA-Public Use
  Company Number: DE-ACTELION-A-CH2019-194683

PATIENT
  Age: 73 Year
  Sex: Female
  Weight: 82 kg

DRUGS (22)
  1. UPTRAVI [Suspect]
     Active Substance: SELEXIPAG
     Dosage: 400 MCG, QD
     Route: 048
     Dates: start: 20190503, end: 20190517
  2. UPTRAVI [Suspect]
     Active Substance: SELEXIPAG
     Dosage: 2000 MCG, QD
     Route: 048
     Dates: start: 20190816
  3. UPTRAVI [Suspect]
     Active Substance: SELEXIPAG
     Dosage: 800 MCG, QD
     Route: 048
     Dates: start: 20190518, end: 20190601
  4. UPTRAVI [Suspect]
     Active Substance: SELEXIPAG
     Dosage: 2000 MCG, QD
     Route: 048
     Dates: start: 20190701, end: 20190708
  5. ADCIRCA [Concomitant]
     Active Substance: TADALAFIL
     Indication: PULMONARY ARTERIAL HYPERTENSION
     Dosage: 40 MG, QD
     Route: 048
     Dates: end: 20191120
  6. OPSUMIT [Suspect]
     Active Substance: MACITENTAN
     Indication: PULMONARY ARTERIAL HYPERTENSION
     Dosage: UNK
     Route: 048
  7. ADEMPAS [Concomitant]
     Active Substance: RIOCIGUAT
     Dosage: 3 MG, QD
     Route: 048
     Dates: start: 20191205, end: 20191218
  8. ADEMPAS [Concomitant]
     Active Substance: RIOCIGUAT
     Dosage: 6 MG, QD
     Route: 048
     Dates: start: 20200114, end: 20200127
  9. ASS CARDIO [Concomitant]
     Active Substance: ASPIRIN
     Indication: ANTICOAGULANT THERAPY
     Dosage: UNK
     Route: 048
  10. KALIUM [Concomitant]
     Active Substance: POTASSIUM CHLORIDE
     Indication: HYPOKALAEMIA
     Dosage: UNK
     Route: 048
  11. UPTRAVI [Suspect]
     Active Substance: SELEXIPAG
     Indication: PULMONARY ARTERIAL HYPERTENSION
     Dosage: 2400 MCG, QD
     Route: 048
     Dates: start: 20190709, end: 20190815
  12. ADEMPAS [Concomitant]
     Active Substance: RIOCIGUAT
     Dosage: 4.5 MG, QD
     Route: 048
     Dates: start: 20191219, end: 20200113
  13. PANTOPRAZOL [Concomitant]
     Active Substance: PANTOPRAZOLE SODIUM
     Indication: PROPHYLAXIS
     Dosage: UNK
     Route: 048
  14. ATORVASTATIN [Concomitant]
     Active Substance: ATORVASTATIN
     Indication: HYPERLIPIDAEMIA
     Dosage: UNK
     Route: 048
  15. METFORMIN [Concomitant]
     Active Substance: METFORMIN HYDROCHLORIDE
     Indication: DIABETES MELLITUS
     Dosage: UNK
     Route: 048
  16. UPTRAVI [Suspect]
     Active Substance: SELEXIPAG
     Dosage: 1200 MCG, QD
     Route: 048
     Dates: start: 20190602, end: 20190616
  17. UPTRAVI [Suspect]
     Active Substance: SELEXIPAG
     Dosage: 1600 MCG, QD
     Route: 048
     Dates: start: 20190617, end: 20190630
  18. ADEMPAS [Concomitant]
     Active Substance: RIOCIGUAT
     Indication: PULMONARY ARTERIAL HYPERTENSION
     Dosage: 1.5 MG, QD
     Route: 048
     Dates: start: 20191121, end: 20191204
  19. ADEMPAS [Concomitant]
     Active Substance: RIOCIGUAT
     Dosage: 7.5 MG, QD
     Route: 048
     Dates: start: 20200128
  20. BISOPROLOL [Concomitant]
     Active Substance: BISOPROLOL
     Indication: HYPERTENSION
     Dosage: UNK
     Route: 048
  21. XIPAMID [Concomitant]
     Active Substance: XIPAMIDE
     Indication: DIURETIC THERAPY
     Dosage: UNK
     Route: 048
  22. TORASEMID [Concomitant]
     Active Substance: TORSEMIDE
     Indication: HYPERTENSION
     Dosage: UNK
     Route: 048

REACTIONS (8)
  - Pulmonary arterial hypertension [Recovered/Resolved with Sequelae]
  - Flatulence [Unknown]
  - Disease progression [Recovered/Resolved with Sequelae]
  - Condition aggravated [Recovered/Resolved with Sequelae]
  - Dizziness [Unknown]
  - Dyspnoea [Recovered/Resolved with Sequelae]
  - Hypokalaemia [Unknown]
  - Constipation [Unknown]
